FAERS Safety Report 16036291 (Version 1)
Quarter: 2019Q1

REPORT INFORMATION
  Report Type: Spontaneous
  Country: US (occurrence: US)
  Receive Date: 20190305
  Receipt Date: 20190305
  Transmission Date: 20190418
  Serious: No
  Sender: FDA-Public Use
  Company Number: US-ALLERGAN-1832397US

PATIENT
  Age: 56 Year
  Sex: Female

DRUGS (1)
  1. ESTRACE [Suspect]
     Active Substance: ESTRADIOL
     Indication: ATROPHIC VULVOVAGINITIS
     Dosage: 1/2 APPLICATOR, BI-WEEKLY
     Route: 067
     Dates: start: 20171215

REACTIONS (2)
  - Application site pain [Unknown]
  - Adverse event [Unknown]
